FAERS Safety Report 9947037 (Version 1)
Quarter: 2014Q1

REPORT INFORMATION
  Report Type: Report from Study
  Country: US (occurrence: US)
  Receive Date: 20140303
  Receipt Date: 20140303
  Transmission Date: 20141002
  Serious: No
  Sender: FDA-Public Use
  Company Number: US-ABBVIE-13P-163-1065383-00

PATIENT
  Age: 23 Year
  Sex: Female

DRUGS (5)
  1. HUMIRA [Suspect]
     Indication: RHEUMATOID ARTHRITIS
     Dates: start: 20120426, end: 20130228
  2. FOLIC ACID [Concomitant]
     Indication: PRODUCT USED FOR UNKNOWN INDICATION
     Dosage: 800 MCG DAILY
  3. TYLENOL #3 [Concomitant]
     Indication: PAIN
  4. DEPO-PROVERA [Concomitant]
     Indication: CONTRACEPTION
     Route: 050
  5. ALPRAZOLAM [Concomitant]
     Indication: ANXIETY

REACTIONS (1)
  - Night sweats [Unknown]
